FAERS Safety Report 17225099 (Version 1)
Quarter: 2020Q1

REPORT INFORMATION
  Report Type: Report from Study
  Country: GB (occurrence: GB)
  Receive Date: 20200102
  Receipt Date: 20200102
  Transmission Date: 20200409
  Serious: Yes (Hospitalization)
  Sender: FDA-Public Use
  Company Number: GB-GLOBAL BLOOD THERAPEUTICS INC-GB-GBT-19-00233

PATIENT
  Age: 7 Year
  Sex: Male
  Weight: 22.2 kg

DRUGS (3)
  1. VOXELOTOR. [Suspect]
     Active Substance: VOXELOTOR
     Indication: SICKLE CELL DISEASE
     Route: 048
     Dates: start: 20190624, end: 20191012
  2. VOXELOTOR. [Suspect]
     Active Substance: VOXELOTOR
     Route: 048
     Dates: start: 20191014
  3. HYDROXYCARBAMIDE [Concomitant]
     Active Substance: HYDROXYUREA
     Indication: SICKLE CELL DISEASE
     Route: 048
     Dates: end: 20191012

REACTIONS (2)
  - Hypersplenism [Recovered/Resolved]
  - Sickle cell anaemia with crisis [Recovered/Resolved]

NARRATIVE: CASE EVENT DATE: 20191012
